FAERS Safety Report 5062272-2 (Version None)
Quarter: 2006Q3

REPORT INFORMATION
  Report Type: 
  Country: None (occurrence: None)
  Receive Date: 20060721
  Receipt Date: 20060711
  Transmission Date: 20061208
  Serious: Yes (Hospitalization, Other)
  Sender: FDA-Public Use
  Company Number: 2006069945

PATIENT
  Age: 70 Year
  Sex: Male

DRUGS (4)
  1. LYRICA [Suspect]
     Indication: POST HERPETIC NEURALGIA
     Dosage: 225 MG (75 MG, 2 IN 1 D) ORAL
     Route: 048
     Dates: start: 20060101, end: 20060101
  2. VALTREX [Concomitant]
  3. METOPROLOL SUCCINATE [Concomitant]
  4. RAMIPRIL [Concomitant]

REACTIONS (10)
  - ACUTE CORONARY SYNDROME [None]
  - CHEST DISCOMFORT [None]
  - COLD SWEAT [None]
  - DIZZINESS [None]
  - DRUG TOXICITY [None]
  - FEELING ABNORMAL [None]
  - INCORRECT DOSE ADMINISTERED [None]
  - NAUSEA [None]
  - SOMNOLENCE [None]
  - VOMITING [None]
